FAERS Safety Report 11629403 (Version 1)
Quarter: 2015Q4

REPORT INFORMATION
  Report Type: Spontaneous
  Country: JP (occurrence: JP)
  Receive Date: 20151014
  Receipt Date: 20151014
  Transmission Date: 20160304
  Serious: Yes (Other)
  Sender: FDA-Public Use
  Company Number: JP-PFIZER INC-2015299109

PATIENT
  Age: 88 Year
  Sex: Female
  Weight: 43 kg

DRUGS (3)
  1. ZYVOX [Suspect]
     Active Substance: LINEZOLID
     Indication: ARTHRITIS INFECTIVE
     Dosage: 600 MG, 2X/DAY
     Route: 048
     Dates: start: 20150821, end: 20150825
  2. CRAVIT [Suspect]
     Active Substance: LEVOFLOXACIN
     Indication: ARTHRITIS INFECTIVE
     Dosage: 500 MG, 1X/DAY
     Route: 048
     Dates: start: 20150821, end: 20150825
  3. FOSMICIN [Concomitant]
     Active Substance: FOSFOMYCIN CALCIUM
     Indication: ARTHRITIS INFECTIVE
     Dosage: 2 G, 2X/DAY
     Route: 048
     Dates: start: 20150821, end: 20150825

REACTIONS (1)
  - Urticaria [Recovered/Resolved]

NARRATIVE: CASE EVENT DATE: 20150826
